FAERS Safety Report 5027138-2 (Version None)
Quarter: 2006Q2

REPORT INFORMATION
  Report Type: 
  Country: None (occurrence: None)
  Receive Date: 20060501
  Receipt Date: 20060126
  Transmission Date: 20061013
  Serious: No
  Sender: FDA-Public Use
  Company Number: 2006PV007715

PATIENT
  Sex: Female

DRUGS (3)
  1. SYMLIN INJECTION (0.6 MG/ML) [Suspect]
     Indication: DIABETES MELLITUS
     Dosage: 120 MCG; SC
     Route: 058
  2. LANTUS [Concomitant]
  3. NOVOLOG [Concomitant]

REACTIONS (4)
  - ACCIDENTAL OVERDOSE [None]
  - BLOOD GLUCOSE INCREASED [None]
  - MEDICATION ERROR [None]
  - WRONG DRUG ADMINISTERED [None]
